FAERS Safety Report 12691304 (Version 1)
Quarter: 2016Q3

REPORT INFORMATION
  Report Type: Spontaneous
  Country: JP (occurrence: JP)
  Receive Date: 20160826
  Receipt Date: 20160826
  Transmission Date: 20161109
  Serious: Yes (Hospitalization, Other)
  Sender: FDA-Public Use
  Company Number: JP-PFIZER INC-2016400452

PATIENT
  Age: 7 Decade
  Sex: Male

DRUGS (2)
  1. CELECOX [Suspect]
     Active Substance: CELECOXIB
     Indication: CONTUSION
  2. CELECOX [Suspect]
     Active Substance: CELECOXIB
     Indication: FRACTURE
     Dosage: UNK
     Route: 048

REACTIONS (1)
  - Small intestine ulcer [Unknown]

NARRATIVE: CASE EVENT DATE: 201511
